FAERS Safety Report 14138238 (Version 2)
Quarter: 2017Q4

REPORT INFORMATION
  Report Type: Report from Study
  Country: US (occurrence: HU)
  Receive Date: 20171027
  Receipt Date: 20171110
  Transmission Date: 20180321
  Serious: Yes (Other)
  Sender: FDA-Public Use
  Company Number: US-SUNOVION-2017SUN004657

PATIENT

DRUGS (3)
  1. BERODUAL [Concomitant]
     Active Substance: FENOTEROL HYDROBROMIDE\IPRATROPIUM BROMIDE
     Dosage: UNK
     Route: 048
     Dates: start: 201710
  2. INDACATEROL AND GLYCOPYRROLATE [Suspect]
     Active Substance: GLYCOPYRROLATE\INDACATEROL MALEATE
     Indication: CHRONIC OBSTRUCTIVE PULMONARY DISEASE
     Dosage: ULTIBRO BREEZHALER (INDACATEROL, GLYCOPYRRONIUM BROMIDE) CAPSULE; 1 DF QD; REGIMEN #1
     Route: 055
     Dates: start: 20170925
  3. REVIXIL [Concomitant]

REACTIONS (2)
  - Choking [Unknown]
  - Cough [Unknown]
